FAERS Safety Report 19631626 (Version 4)
Quarter: 2022Q1

REPORT INFORMATION
  Report Type: Spontaneous
  Country: US (occurrence: US)
  Receive Date: 20210729
  Receipt Date: 20220106
  Transmission Date: 20220423
  Serious: Yes (Hospitalization, Other)
  Sender: FDA-Public Use
  Company Number: US-PFIZER INC-2021619074

PATIENT
  Age: 61 Year
  Sex: Female

DRUGS (2)
  1. XELJANZ XR [Suspect]
     Active Substance: TOFACITINIB CITRATE
     Indication: Rheumatoid arthritis
     Dosage: 11 MG, DAILY
     Route: 048
     Dates: start: 202104
  2. XELJANZ XR [Suspect]
     Active Substance: TOFACITINIB CITRATE
     Dosage: 11 MG, DAILY
     Route: 048
     Dates: start: 20210526

REACTIONS (8)
  - Blood potassium decreased [Unknown]
  - Product dose omission issue [Unknown]
  - Fatigue [Recovering/Resolving]
  - Pain [Unknown]
  - Asthenia [Unknown]
  - Paraesthesia [Unknown]
  - Hyperhidrosis [Unknown]
  - Red blood cell sedimentation rate decreased [Unknown]
